FAERS Safety Report 6645299-6 (Version None)
Quarter: 2010Q1

REPORT INFORMATION
  Report Type: 
  Country: None (occurrence: None)
  Receive Date: 20100322
  Receipt Date: 20100316
  Transmission Date: 20100710
  Serious: Yes (Death)
  Sender: FDA-Public Use
  Company Number: US-GENENTECH-299323

PATIENT
  Age: 69 Year
  Sex: Female

DRUGS (1)
  1. RITUXAN [Suspect]
     Indication: CRYOGLOBULINAEMIA
     Dosage: 1 G, Q2W
     Route: 042

REACTIONS (3)
  - DEATH [None]
  - FATIGUE [None]
  - PLATELET COUNT DECREASED [None]
